FAERS Safety Report 5903737-8 (Version None)
Quarter: 2008Q3

REPORT INFORMATION
  Report Type: 
  Country: None (occurrence: None)
  Receive Date: 20080930
  Receipt Date: 20080919
  Transmission Date: 20090109
  Serious: Yes (Other)
  Sender: FDA-Public Use
  Company Number: US-PFIZER INC-2008080030

PATIENT
  Age: 41 Year
  Sex: Male
  Weight: 109.54 kg

DRUGS (6)
  1. SPIRONOLACTONE [Suspect]
     Indication: PRIMARY HYPERALDOSTERONISM
     Dates: start: 20080101, end: 20080101
  2. SPIRONOLACTONE [Suspect]
     Indication: HYPERALDOSTERONISM
  3. GARLIC [Concomitant]
  4. LINSEED OIL [Concomitant]
  5. ONE-A-DAY [Concomitant]
  6. VITAMINS [Concomitant]

REACTIONS (3)
  - CHEST PAIN [None]
  - GYNAECOMASTIA [None]
  - HYDROCELE [None]
